FAERS Safety Report 8825204 (Version 1)
Quarter: 2012Q4

REPORT INFORMATION
  Report Type: 
  Country: US (occurrence: US)
  Receive Date: 20121004
  Receipt Date: 20121004
  Transmission Date: 20130627
  Serious: Yes (Death)
  Sender: FDA-Public Use
  Company Number: US-ROCHE-1129902

PATIENT
  Age: 81 Year
  Sex: Female

DRUGS (7)
  1. RITUXAN [Suspect]
     Indication: LYMPHOMA
     Route: 065
     Dates: start: 20000203
  2. RITUXAN [Suspect]
     Indication: OFF LABEL USE
  3. COUMADIN [Concomitant]
  4. DARVOCET [Concomitant]
  5. LORTAB [Concomitant]
  6. BENADRYL [Concomitant]
     Route: 065
  7. NORMAL SALINE [Concomitant]
     Dosage: 250 cc
     Route: 065

REACTIONS (4)
  - Death [Fatal]
  - Abdominal pain [Unknown]
  - Oedema peripheral [Unknown]
  - Fatigue [Unknown]
